FAERS Safety Report 22868228 (Version 2)
Quarter: 2024Q1

REPORT INFORMATION
  Report Type: Spontaneous
  Country: MX (occurrence: MX)
  Receive Date: 20230825
  Receipt Date: 20240105
  Transmission Date: 20240410
  Serious: Yes (Other)
  Sender: FDA-Public Use
  Company Number: MX-BIOMARINAP-MX-2023-152279

PATIENT

DRUGS (1)
  1. VIMIZIM [Suspect]
     Active Substance: ELOSULFASE ALFA
     Indication: Mucopolysaccharidosis IV
     Dosage: UNK, QW
     Route: 042
     Dates: start: 20160526

REACTIONS (4)
  - Ovarian germ cell teratoma [Recovering/Resolving]
  - Tumour pain [Recovering/Resolving]
  - Weight decreased [Recovering/Resolving]
  - Appendix disorder [Recovering/Resolving]

NARRATIVE: CASE EVENT DATE: 20230818
